FAERS Safety Report 9173955 (Version 1)
Quarter: 2012Q4

REPORT INFORMATION
  Report Type: Spontaneous
  Country: US (occurrence: None)
  Receive Date: 20121004
  Receipt Date: 20121004
  Transmission Date: 20130627
  Serious: Yes (Other)
  Sender: FDA-Public Use
  Company Number: DKLU1080141

PATIENT

DRUGS (1)
  1. INDOCIN (INDOMETHACIN FOR INJECTION)(INDOMETHACIN) [Suspect]
     Indication: PATENT DUCTUS ARTERIOSUS

REACTIONS (1)
  - Intraventricular haemorrhage neonatal [None]
